FAERS Safety Report 7166835-X (Version None)
Quarter: 2010Q4

REPORT INFORMATION
  Report Type: 
  Country: None (occurrence: None)
  Receive Date: 20101213
  Receipt Date: 20101213
  Transmission Date: 20110411
  Serious: Yes (Other)
  Sender: FDA-Public Use
  Company Number: None

PATIENT
  Age: 18 Year
  Sex: Male
  Weight: 77.1115 kg

DRUGS (1)
  1. VYVANSE [Suspect]
     Dosage: 20 MG
     Dates: start: 20090729, end: 20090729

REACTIONS (2)
  - ROAD TRAFFIC ACCIDENT [None]
  - SELF-MEDICATION [None]
